FAERS Safety Report 6344471-2 (Version None)
Quarter: 2009Q3

REPORT INFORMATION
  Report Type: 
  Country: None (occurrence: None)
  Receive Date: 20090908
  Receipt Date: 20090828
  Transmission Date: 20100115
  Serious: Yes (Other)
  Sender: FDA-Public Use
  Company Number: NO-GENENTECH-289697

PATIENT

DRUGS (3)
  1. ACTIVASE [Suspect]
     Indication: DEEP VEIN THROMBOSIS
     Dosage: 20 MG, UNK
     Route: 042
  2. UNFRACTIONATED HEPARIN [Suspect]
     Indication: DEEP VEIN THROMBOSIS
     Dosage: 5000 U, UNK
     Route: 040
  3. UNFRACTIONATED HEPARIN [Suspect]
     Dosage: 15 U/KG/H, UNK
     Route: 042

REACTIONS (1)
  - SENSORY LOSS [None]
